FAERS Safety Report 17238088 (Version 1)
Quarter: 2020Q1

REPORT INFORMATION
  Report Type: Spontaneous
  Country: US (occurrence: US)
  Receive Date: 20200106
  Receipt Date: 20200106
  Transmission Date: 20200409
  Serious: No
  Sender: FDA-Public Use
  Company Number: US-PACIRA-201900244

PATIENT
  Age: 57 Year
  Sex: Female

DRUGS (2)
  1. EXPAREL [Suspect]
     Active Substance: BUPIVACAINE
     Indication: NERVE BLOCK
     Dosage: 20 ML EXPAREL
     Route: 058
     Dates: start: 20190619, end: 20190619
  2. MARCAINE [Suspect]
     Active Substance: BUPIVACAINE HYDROCHLORIDE
     Indication: NERVE BLOCK
     Dosage: 20 ML MARCAINE (% UNKNOWN)
     Route: 058
     Dates: start: 20190619, end: 20190619

REACTIONS (2)
  - Hypoaesthesia [Recovered/Resolved]
  - Fall [Recovered/Resolved]

NARRATIVE: CASE EVENT DATE: 20190619
